FAERS Safety Report 20246609 (Version 1)
Quarter: 2021Q4

REPORT INFORMATION
  Report Type: Spontaneous
  Country: CN (occurrence: CN)
  Receive Date: 20211229
  Receipt Date: 20211229
  Transmission Date: 20220304
  Serious: Yes (Hospitalization)
  Sender: FDA-Public Use
  Company Number: CN-GLAXOSMITHKLINE-CN2021APC260845

PATIENT
  Age: 44 Year
  Sex: Female

DRUGS (3)
  1. BENLYSTA [Suspect]
     Active Substance: BELIMUMAB
     Indication: Immunosuppression
     Dosage: 480 MG, Z, 30 DYAS
     Route: 041
     Dates: start: 20210714, end: 20210924
  2. PREDNISONE ACETATE [Suspect]
     Active Substance: PREDNISONE ACETATE
     Indication: Antiinflammatory therapy
     Dosage: 10 MG, QOD
     Route: 048
     Dates: start: 20210925, end: 20211023
  3. PREDNISONE ACETATE [Suspect]
     Active Substance: PREDNISONE ACETATE
     Dosage: 7.5 MG, QOD
     Route: 048
     Dates: start: 20210925, end: 20211023

REACTIONS (3)
  - Herpes zoster [Recovering/Resolving]
  - Herpes virus infection [Recovering/Resolving]
  - Back pain [Recovering/Resolving]

NARRATIVE: CASE EVENT DATE: 20211024
